FAERS Safety Report 5870698-X (Version None)
Quarter: 2008Q3

REPORT INFORMATION
  Report Type: 
  Country: None (occurrence: None)
  Receive Date: 20080904
  Receipt Date: 20080904
  Transmission Date: 20090109
  Serious: Yes (Hospitalization)
  Sender: FDA-Public Use
  Company Number: PHEH1996US07346

PATIENT
  Sex: Female
  Weight: 52 kg

DRUGS (6)
  1. NEORAL [Suspect]
     Route: 048
     Dates: start: 19950408
  2. IMURAN [Suspect]
     Dosage: UNSPECIFIED
     Route: 065
  3. PREDNISONE [Suspect]
     Dosage: UNSPECIFIED
     Route: 065
  4. FLUDROCORTISONE ACETATE [Concomitant]
  5. AMPHOJEL (ALUMINIUM HYDROXIDE GEL) [Concomitant]
  6. MAALOX [Concomitant]

REACTIONS (4)
  - DEHYDRATION [None]
  - DYSPHAGIA [None]
  - GENITAL CANDIDIASIS [None]
  - OESOPHAGEAL CANDIDIASIS [None]
